FAERS Safety Report 13719272 (Version 2)
Quarter: 2017Q4

REPORT INFORMATION
  Report Type: Spontaneous
  Country: JP (occurrence: JP)
  Receive Date: 20170705
  Receipt Date: 20171206
  Transmission Date: 20180320
  Serious: Yes (Other)
  Sender: FDA-Public Use
  Company Number: JP-MITSUBISHI TANABE PHARMA CORPORATION-MTPC2017-0012431

PATIENT
  Age: 83 Year
  Sex: Female
  Weight: 57 kg

DRUGS (4)
  1. SLONNON HI [Suspect]
     Active Substance: ARGATROBAN
     Indication: THROMBOTIC CEREBRAL INFARCTION
     Route: 041
     Dates: start: 20170519, end: 20170520
  2. SLONNON HI [Suspect]
     Active Substance: ARGATROBAN
     Route: 041
     Dates: start: 20170521, end: 20170522
  3. RADICUT [Suspect]
     Active Substance: EDARAVONE
     Indication: THROMBOTIC CEREBRAL INFARCTION
     Route: 041
     Dates: start: 20170519, end: 20170522
  4. NOVO HEPARIN [Concomitant]
     Active Substance: HEPARIN SODIUM
     Indication: THROMBOTIC CEREBRAL INFARCTION
     Route: 041
     Dates: start: 20170521, end: 20170522

REACTIONS (3)
  - Renal impairment [Unknown]
  - Fibrin D dimer increased [Not Recovered/Not Resolved]
  - Coagulation time prolonged [Recovered/Resolved]

NARRATIVE: CASE EVENT DATE: 20170523
